FAERS Safety Report 19803115 (Version 1)
Quarter: 2021Q3

REPORT INFORMATION
  Report Type: Spontaneous
  Country: CA (occurrence: CA)
  Receive Date: 20210908
  Receipt Date: 20210908
  Transmission Date: 20211014
  Serious: Yes (Other)
  Sender: FDA-Public Use
  Company Number: CA-ROCHE-2904148

PATIENT
  Age: 81 Year
  Sex: Male

DRUGS (12)
  1. WARFARIN [Concomitant]
     Active Substance: WARFARIN
  2. ALENDRONATE SODIUM. [Concomitant]
     Active Substance: ALENDRONATE SODIUM
  3. FUROSEMIDE. [Concomitant]
     Active Substance: FUROSEMIDE
  4. LOSARTAN. [Concomitant]
     Active Substance: LOSARTAN
  5. TELMISARTAN. [Concomitant]
     Active Substance: TELMISARTAN
  6. METOPROLOL. [Concomitant]
     Active Substance: METOPROLOL
  7. RABEPRAZOLE [Concomitant]
     Active Substance: RABEPRAZOLE
  8. RITUXIMAB. [Suspect]
     Active Substance: RITUXIMAB
     Indication: RHEUMATOID ARTHRITIS
     Route: 041
  9. LEVOTHYROXINE. [Concomitant]
     Active Substance: LEVOTHYROXINE
  10. PREDNISONE. [Concomitant]
     Active Substance: PREDNISONE
  11. ATORVASTATIN [Concomitant]
     Active Substance: ATORVASTATIN
  12. FOLIC ACID. [Concomitant]
     Active Substance: FOLIC ACID

REACTIONS (5)
  - Interstitial lung disease [Not Recovered/Not Resolved]
  - Cardiac failure [Not Recovered/Not Resolved]
  - Fatigue [Not Recovered/Not Resolved]
  - Gait disturbance [Not Recovered/Not Resolved]
  - Myelodysplastic syndrome [Not Recovered/Not Resolved]
